FAERS Safety Report 11149696 (Version 2)
Quarter: 2015Q3

REPORT INFORMATION
  Report Type: Report from Study
  Country: JP (occurrence: JP)
  Receive Date: 20150529
  Receipt Date: 20150703
  Transmission Date: 20151125
  Serious: Yes (Hospitalization)
  Sender: FDA-Public Use
  Company Number: JP-009507513-1505JPN013599

PATIENT
  Age: 79 Year
  Sex: Female
  Weight: 41.6 kg

DRUGS (10)
  1. RISUMIC [Concomitant]
     Active Substance: AMEZINIUM METILSULFATE
  2. CALCIUM CARBONATE. [Concomitant]
     Active Substance: CALCIUM CARBONATE
  3. ITOROL [Concomitant]
     Active Substance: ISOSORBIDE MONONITRATE
  4. PLAVIX [Concomitant]
     Active Substance: CLOPIDOGREL BISULFATE
  5. NEXIUM [Concomitant]
     Active Substance: ESOMEPRAZOLE MAGNESIUM
  6. MIRCERA [Concomitant]
     Active Substance: METHOXY POLYETHYLENE GLYCOL-EPOETIN BETA
  7. HUMALOG MIX [Concomitant]
     Active Substance: INSULIN LISPRO
  8. LIPITOR [Concomitant]
     Active Substance: ATORVASTATIN CALCIUM
  9. PLETAAL [Concomitant]
     Active Substance: CILOSTAZOL
  10. GLACTIV [Suspect]
     Active Substance: SITAGLIPTIN
     Indication: TYPE 2 DIABETES MELLITUS
     Dosage: 12.5 MG, QD (AFTER DINNER)
     Route: 048
     Dates: start: 20140322, end: 20150205

REACTIONS (1)
  - Anaemia [Unknown]

NARRATIVE: CASE EVENT DATE: 20150127
